FAERS Safety Report 6499135-1 (Version None)
Quarter: 2009Q4

REPORT INFORMATION
  Report Type: 
  Country: None (occurrence: None)
  Receive Date: 20091127
  Receipt Date: 20081013
  Transmission Date: 20100525
  Serious: Yes (Other)
  Sender: FDA-Public Use
  Company Number: WAES 0807USA04089

PATIENT
  Age: 70 Year
  Sex: Female
  Weight: 50.8029 kg

DRUGS (6)
  1. FOSAMAX PLUS D [Suspect]
     Indication: OSTEOPOROSIS
     Dosage: 70 MG/2800IU/WKY/PO
     Route: 048
     Dates: start: 20070101
  2. ADVAIR HFA [Concomitant]
  3. ASTELIN [Concomitant]
  4. CIPRO [Concomitant]
  5. SPIRIVA [Concomitant]
  6. TOBRAMYCIN [Concomitant]

REACTIONS (2)
  - OSTEONECROSIS [None]
  - PNEUMONIA [None]
